FAERS Safety Report 6239138-5 (Version None)
Quarter: 2009Q2

REPORT INFORMATION
  Report Type: 
  Country: None (occurrence: None)
  Receive Date: 20090622
  Receipt Date: 20090609
  Transmission Date: 20091009
  Serious: Yes (Hospitalization)
  Sender: FDA-Public Use
  Company Number: DE-MEDIMMUNE-MEDI-0008442

PATIENT
  Sex: Male
  Weight: 1.78 kg

DRUGS (2)
  1. SYNAGIS [Suspect]
     Indication: ANTIVIRAL PROPHYLAXIS
     Route: 030
     Dates: start: 20090127, end: 20090217
  2. SYNAGIS [Suspect]
     Indication: PNEUMONIA RESPIRATORY SYNCYTIAL VIRAL
     Route: 030
     Dates: start: 20090127

REACTIONS (1)
  - PNEUMONIA RESPIRATORY SYNCYTIAL VIRAL [None]
